FAERS Safety Report 18478707 (Version 1)
Quarter: 2020Q4

REPORT INFORMATION
  Report Type: Spontaneous
  Country: US (occurrence: US)
  Receive Date: 20201109
  Receipt Date: 20201109
  Transmission Date: 20210114
  Serious: No
  Sender: FDA-Public Use
  Company Number: US-TEVA-2020-US-1847259

PATIENT

DRUGS (1)
  1. AMPHETAMINE W/DEXTROAMPHETAMINE [Suspect]
     Active Substance: AMPHETAMINE SULFATE\DEXTROAMPHETAMINE
     Dosage: FORM OF ADMIN: IMMEDIATE-RELEASE
     Route: 065

REACTIONS (4)
  - Product formulation issue [Unknown]
  - Therapeutic product effect incomplete [Unknown]
  - Product substitution issue [Unknown]
  - Constipation [Unknown]
